FAERS Safety Report 5947310-4 (Version None)
Quarter: 2008Q4

REPORT INFORMATION
  Report Type: 
  Country: None (occurrence: None)
  Receive Date: 20081110
  Receipt Date: 20081029
  Transmission Date: 20090506
  Serious: Yes (Hospitalization)
  Sender: FDA-Public Use
  Company Number: IT-PFIZER INC-2008087906

PATIENT
  Sex: Male

DRUGS (2)
  1. UNASYN [Suspect]
     Indication: ANTIBIOTIC PROPHYLAXIS
     Route: 042
     Dates: start: 20081013, end: 20081015
  2. ACETAMINOPHEN [Concomitant]
     Dates: start: 20081014, end: 20081014

REACTIONS (3)
  - BODY TEMPERATURE INCREASED [None]
  - PRURITUS [None]
  - RASH MACULO-PAPULAR [None]
